FAERS Safety Report 22220683 (Version 1)
Quarter: 2023Q2

REPORT INFORMATION
  Report Type: Spontaneous
  Country: JP (occurrence: JP)
  Receive Date: 20230417
  Receipt Date: 20230417
  Transmission Date: 20230721
  Serious: Yes (Death, Other)
  Sender: FDA-Public Use
  Company Number: JP-STRIDES ARCOLAB LIMITED-2023SP005500

PATIENT
  Age: 76 Year
  Sex: Female

DRUGS (4)
  1. CARBOPLATIN [Suspect]
     Active Substance: CARBOPLATIN
     Indication: Small cell lung cancer extensive stage
     Dosage: UNK, CYCLICAL, FIRST LINE TREATMENT , RECEIVED FOUR CYCLES
     Route: 065
     Dates: start: 20210505, end: 2021
  2. ETOPOSIDE [Suspect]
     Active Substance: ETOPOSIDE
     Indication: Small cell lung cancer extensive stage
     Dosage: UNK, CYCLICAL, FIRST LINE TREATMENT , RECEIVED FOUR CYCLES
     Route: 065
     Dates: start: 20210505, end: 2021
  3. ATEZOLIZUMAB [Suspect]
     Active Substance: ATEZOLIZUMAB
     Indication: Small cell lung cancer extensive stage
     Dosage: UNK, CYCLICAL, FIRST LINE TREATMENT , RECEIVED FOUR CYCLES
     Route: 065
     Dates: start: 20210505, end: 2021
  4. AMRUBICIN [Suspect]
     Active Substance: AMRUBICIN
     Indication: Small cell lung cancer extensive stage
     Dosage: UNK, CYCLICAL, SECOND LINE CHEMOTHERAPY, RECEIVED TWO CYCLES
     Route: 065
     Dates: start: 20210915, end: 20211022

REACTIONS (3)
  - Death [Fatal]
  - Drug ineffective [Unknown]
  - Off label use [Unknown]

NARRATIVE: CASE EVENT DATE: 20220110
